FAERS Safety Report 9768390 (Version 2)
Quarter: 2014Q1

REPORT INFORMATION
  Report Type: Spontaneous
  Country: JP (occurrence: JP)
  Receive Date: 20131217
  Receipt Date: 20140227
  Transmission Date: 20141002
  Serious: Yes (Other)
  Sender: FDA-Public Use
  Company Number: JP-PFIZER INC-2013354397

PATIENT
  Age: 63 Year
  Sex: Male

DRUGS (2)
  1. HYDROCORTISONE SODIUM SUCCINATE [Suspect]
     Indication: ADRENOCORTICOTROPIC HORMONE DEFICIENCY
     Dosage: 200 MG, DAILY
  2. HYDROCORTISONE SODIUM SUCCINATE [Suspect]
     Dosage: 20 MG, DAILY

REACTIONS (2)
  - Psychotic disorder due to a general medical condition [Unknown]
  - Paraphilia [Unknown]
